FAERS Safety Report 23885169 (Version 1)
Quarter: 2024Q2

REPORT INFORMATION
  Report Type: Spontaneous
  Country: AU (occurrence: AU)
  Receive Date: 20240522
  Receipt Date: 20240522
  Transmission Date: 20240716
  Serious: Yes (Other)
  Sender: FDA-Public Use
  Company Number: AU-SUN PHARMACEUTICAL INDUSTRIES LTD-2024R1-447392

PATIENT
  Sex: Female

DRUGS (16)
  1. DOXORUBICIN [Suspect]
     Active Substance: DOXORUBICIN
     Indication: Diffuse large B-cell lymphoma
     Dosage: UNK/AS A PART OF R-CHOP X 6 REGIMEN, FIRST LINE
     Route: 065
  2. DOXORUBICIN [Suspect]
     Active Substance: DOXORUBICIN
     Dosage: UNK/AS A PART OF R-HYPER CVAD-B REGIMEN X 4
     Route: 065
  3. DEXAMETHASONE [Suspect]
     Active Substance: DEXAMETHASONE
     Indication: Diffuse large B-cell lymphoma
     Dosage: UNK, AS A PART OF R-HYPER CVAD-B REGIMEN X 4
     Route: 065
  4. METHOTREXATE [Suspect]
     Active Substance: METHOTREXATE
     Indication: Diffuse large B-cell lymphoma
     Dosage: 1.5 G M2 X 1, HIGH DOSE
     Route: 065
  5. METHOTREXATE [Suspect]
     Active Substance: METHOTREXATE
     Dosage: 1G M2 FOR C1, AS A PART OF R-MPV REGIMEN, SECOND LINE
     Route: 065
  6. METHOTREXATE [Suspect]
     Active Substance: METHOTREXATE
     Dosage: 1.5G M2 FOR C1 AS A PART OF R-MPV REGIMEN, SECOND LINE
     Route: 065
  7. PREDNISONE [Suspect]
     Active Substance: PREDNISONE
     Indication: Diffuse large B-cell lymphoma
     Dosage: UNK/AS A PART OF R-CHOP X 6 REGIMEN, FIRST LINE
     Route: 065
  8. VINCRISTINE [Suspect]
     Active Substance: VINCRISTINE
     Indication: Diffuse large B-cell lymphoma
     Dosage: UNK/AS A PART OF R-CHOP X 6 REGIMEN, FIRST LINE
     Route: 065
  9. VINCRISTINE [Suspect]
     Active Substance: VINCRISTINE
     Dosage: UNK, AS A PART OF R-MPV REGIMEN, SECOND LINE
     Route: 065
  10. VINCRISTINE [Suspect]
     Active Substance: VINCRISTINE
     Dosage: UNK, AS A PART OF R-HYPER CVAD-B REGIMEN X 4
     Route: 065
  11. CYCLOPHOSPHAMIDE [Suspect]
     Active Substance: CYCLOPHOSPHAMIDE
     Indication: Diffuse large B-cell lymphoma
     Dosage: UNK/R-HYPER CVAD-B REGIMEN X 4
     Route: 065
  12. CYTARABINE [Suspect]
     Active Substance: CYTARABINE
     Indication: Diffuse large B-cell lymphoma
     Dosage: 1G M2, COMBINED WITH R-HYPER CVAD-B REGIMEN X 4
     Route: 065
  13. RITUXIMAB [Suspect]
     Active Substance: RITUXIMAB
     Indication: Diffuse large B-cell lymphoma
     Dosage: UNK/AS A PART OF R-CHOP X 6 REGIMEN, FIRST LINE
     Route: 065
  14. RITUXIMAB [Suspect]
     Active Substance: RITUXIMAB
     Dosage: UNK/AS A PART OF R-MPV REGIMEN, SECOND LINE
     Route: 065
  15. RITUXIMAB [Suspect]
     Active Substance: RITUXIMAB
     Dosage: UNK/AS A PART OF R-HYPER CVAD-B REGIMEN X 4
     Route: 065
  16. PROCARBAZINE [Suspect]
     Active Substance: PROCARBAZINE
     Indication: Diffuse large B-cell lymphoma
     Dosage: UNK, AS A PART OF R-MPV REGIMEN, SECOND LINE
     Route: 065

REACTIONS (8)
  - Central nervous system lymphoma [Unknown]
  - Diffuse large B-cell lymphoma recurrent [Unknown]
  - Disease recurrence [Unknown]
  - Nervous system disorder [Unknown]
  - Muscular weakness [Unknown]
  - Mass [Unknown]
  - Off label use [Unknown]
  - Balance disorder [Unknown]
